FAERS Safety Report 9487690 (Version 2)
Quarter: 2013Q3

REPORT INFORMATION
  Report Type: Spontaneous
  Country: US (occurrence: US)
  Receive Date: 20130725
  Receipt Date: 20130725
  Transmission Date: 20140515
  Serious: Yes (Hospitalization)
  Sender: FDA-Public Use
  Company Number: US-GLAXOSMITHKLINE-A0874926A

PATIENT
  Age: 57 Year
  Sex: Female

DRUGS (11)
  1. AVANDIA [Suspect]
     Indication: TYPE 2 DIABETES MELLITUS
     Route: 048
     Dates: start: 20020729, end: 20050303
  2. NOVOLIN [Concomitant]
  3. NEURONTIN [Concomitant]
  4. PROCRIT [Concomitant]
  5. TOPROL [Concomitant]
  6. MINOXIDIL [Concomitant]
  7. ISOSORBID DINITRATE [Concomitant]
  8. DILTIAZEM [Concomitant]
  9. AVAPRO [Concomitant]
  10. FUROSEMIDE [Concomitant]
  11. LIPITOR [Concomitant]

REACTIONS (1)
  - Cardiac failure congestive [Recovered/Resolved]
